FAERS Safety Report 23354717 (Version 11)
Quarter: 2025Q3

REPORT INFORMATION
  Report Type: Spontaneous
  Country: JP (occurrence: JP)
  Receive Date: 20240101
  Receipt Date: 20250810
  Transmission Date: 20251020
  Serious: Yes (Death, Life-Threatening, Hospitalization, Other)
  Sender: ALEXION PHARMACEUTICALS
  Company Number: 2023A285241

PATIENT
  Age: 82 Year
  Sex: Male
  Weight: 63 kg

DRUGS (29)
  1. IMFINZI [Suspect]
     Active Substance: DURVALUMAB
     Indication: Hepatocellular carcinoma
  2. IMJUDO [Suspect]
     Active Substance: TREMELIMUMAB\TREMELIMUMAB-ACTL
     Indication: Hepatocellular carcinoma
  3. HEPAACT [Concomitant]
     Dosage: AFTER EACH MEAL
     Dates: start: 20231023, end: 20231219
  4. OLMESARTAN MEDOXOMIL [Concomitant]
     Active Substance: OLMESARTAN MEDOXOMIL
     Dosage: AFTER BREAKFAST
     Dates: end: 20231128
  5. AZELNIDIPINE [Concomitant]
     Active Substance: AZELNIDIPINE
     Dosage: AFTER BREAKFAST
     Dates: end: 20231128
  6. EPLERENONE [Concomitant]
     Active Substance: EPLERENONE
     Dosage: AFTER BREAKFAST
     Dates: end: 20231128
  7. DOXAZOSIN [Concomitant]
     Active Substance: DOXAZOSIN MESYLATE
     Dosage: AFTER DINNER
     Dates: end: 20231127
  8. MAGNESIUM OXIDE [Concomitant]
     Active Substance: MAGNESIUM OXIDE
     Indication: Constipation
     Dosage: 330 MILLIGRAM, TID
     Dates: start: 20231121, end: 20231125
  9. MAGNESIUM OXIDE [Concomitant]
     Active Substance: MAGNESIUM OXIDE
     Dosage: AFTER EACH MEAL
     Dates: start: 20231120, end: 20231125
  10. URSODIOL [Concomitant]
     Active Substance: URSODIOL
     Dosage: AFTER EACH MEAL
     Dates: start: 20231023, end: 20231219
  11. VONOPRAZAN FUMARATE [Concomitant]
     Active Substance: VONOPRAZAN FUMARATE
  12. VONOPRAZAN FUMARATE [Concomitant]
     Active Substance: VONOPRAZAN FUMARATE
  13. VONOPRAZAN FUMARATE [Concomitant]
     Active Substance: VONOPRAZAN FUMARATE
  14. VONOPRAZAN FUMARATE [Concomitant]
     Active Substance: VONOPRAZAN FUMARATE
  15. ESAXERENONE [Concomitant]
     Active Substance: ESAXERENONE
  16. ESAXERENONE [Concomitant]
     Active Substance: ESAXERENONE
  17. ESAXERENONE [Concomitant]
     Active Substance: ESAXERENONE
  18. ESAXERENONE [Concomitant]
     Active Substance: ESAXERENONE
  19. TOPIROXOSTAT [Concomitant]
     Active Substance: TOPIROXOSTAT
  20. TOPIROXOSTAT [Concomitant]
     Active Substance: TOPIROXOSTAT
  21. TOPIROXOSTAT [Concomitant]
     Active Substance: TOPIROXOSTAT
  22. TOPIROXOSTAT [Concomitant]
     Active Substance: TOPIROXOSTAT
  23. URSO [Concomitant]
     Active Substance: URSODIOL
     Indication: Cirrhosis alcoholic
     Dosage: AFTER EACH MEAL
     Dates: start: 20231023, end: 20231220
  24. AMINO ACIDS, SOURCE UNSPECIFIED [Concomitant]
     Active Substance: AMINO ACIDS, SOURCE UNSPECIFIED
     Indication: Cirrhosis alcoholic
     Dates: start: 20231023, end: 20231220
  25. AZELNIDIPINE\OLMESARTAN MEDOXOMIL [Concomitant]
     Active Substance: AZELNIDIPINE\OLMESARTAN MEDOXOMIL
  26. AZELNIDIPINE\OLMESARTAN MEDOXOMIL [Concomitant]
     Active Substance: AZELNIDIPINE\OLMESARTAN MEDOXOMIL
  27. AZELNIDIPINE\OLMESARTAN MEDOXOMIL [Concomitant]
     Active Substance: AZELNIDIPINE\OLMESARTAN MEDOXOMIL
  28. CALBLOCK [Concomitant]
     Active Substance: AZELNIDIPINE
     Indication: Hypertension
     Dosage: AFTER BREAKFAST
     Dates: end: 20231221
  29. CARDENALIN [Concomitant]
     Active Substance: DOXAZOSIN MESYLATE
     Indication: Hypertension
     Dates: end: 20231220

REACTIONS (6)
  - Immune-mediated lung disease [Fatal]
  - Interstitial lung disease [Fatal]
  - Acute kidney injury [Recovering/Resolving]
  - Pleural effusion [Not Recovered/Not Resolved]
  - Immune-mediated enterocolitis [Recovering/Resolving]
  - Dehydration [Recovering/Resolving]

NARRATIVE: CASE EVENT DATE: 20231128
